FAERS Safety Report 7138007-6 (Version None)
Quarter: 2010Q4

REPORT INFORMATION
  Report Type: 
  Country: None (occurrence: None)
  Receive Date: 20101206
  Receipt Date: 20101109
  Transmission Date: 20110411
  Serious: No
  Sender: FDA-Public Use
  Company Number: GR-SANOFI-AVENTIS-2010SA068270

PATIENT
  Sex: Female

DRUGS (1)
  1. ARAVA [Suspect]
     Route: 065

REACTIONS (1)
  - DRUG EXPOSURE DURING PREGNANCY [None]
